FAERS Safety Report 19240679 (Version 2)
Quarter: 2021Q2

REPORT INFORMATION
  Report Type: Other
  Country: US (occurrence: US)
  Receive Date: 20210511
  Receipt Date: 20210517
  Transmission Date: 20210717
  Serious: No
  Sender: FDA-Public Use
  Company Number: US-ROCHE-2819926

PATIENT
  Age: 29 Year
  Sex: Female
  Weight: 102.15 kg

DRUGS (5)
  1. SOLU?MEDROL [Concomitant]
     Active Substance: METHYLPREDNISOLONE SODIUM SUCCINATE
     Indication: PREMEDICATION
     Route: 042
  2. OCREVUS [Suspect]
     Active Substance: OCRELIZUMAB
     Indication: RELAPSING MULTIPLE SCLEROSIS
     Route: 042
     Dates: start: 201804
  3. VITAMIN D3 [Concomitant]
     Active Substance: CHOLECALCIFEROL
     Indication: VITAMIN D DEFICIENCY
     Route: 048
  4. BENADRYL [Concomitant]
     Active Substance: DIPHENHYDRAMINE HYDROCHLORIDE
     Indication: PREMEDICATION
     Route: 042
  5. CELEXA [Concomitant]
     Active Substance: CITALOPRAM HYDROBROMIDE
     Route: 048

REACTIONS (6)
  - Migraine [Unknown]
  - Hypersomnia [Unknown]
  - Sleep apnoea syndrome [Unknown]
  - Sleep disorder [Unknown]
  - JC polyomavirus test positive [Not Recovered/Not Resolved]
  - Vitamin D deficiency [Unknown]

NARRATIVE: CASE EVENT DATE: 201806
